FAERS Safety Report 14186723 (Version 1)
Quarter: 2017Q4

REPORT INFORMATION
  Report Type: Spontaneous
  Country: US (occurrence: None)
  Receive Date: 20171112
  Receipt Date: 20171112
  Transmission Date: 20180321
  Serious: No
  Sender: FDA-Public Use
  Company Number: None

PATIENT
  Age: 31 Year
  Sex: Male

DRUGS (1)
  1. DUPIXENT [Suspect]
     Active Substance: DUPILUMAB
     Indication: ANGINA PECTORIS
     Dosage: 600MG (2X300MG) ON DAY 1 SUBQ
     Route: 058
     Dates: start: 20170926

REACTIONS (1)
  - Dry eye [None]

NARRATIVE: CASE EVENT DATE: 20170926
